FAERS Safety Report 8962588 (Version 1)
Quarter: 2012Q4

REPORT INFORMATION
  Report Type: 
  Country: GB (occurrence: GB)
  Receive Date: 20121213
  Receipt Date: 20121213
  Transmission Date: 20130627
  Serious: Yes (Hospitalization)
  Sender: FDA-Public Use
  Company Number: GB-BANPHARM-20120410

PATIENT
  Age: 81 Year
  Sex: Male
  Weight: 63.4 kg

DRUGS (7)
  1. IBUPROFEN UNKNOWN PRODUCT [Suspect]
     Indication: ARTHRITIS
     Dosage: 5% , TID,
     Route: 061
     Dates: start: 20121106, end: 20121112
  2. ASPIRIN [Suspect]
     Indication: ATRIAL FIBRILLATION
     Dosage: 75mg, QD
     Route: 048
     Dates: end: 20121112
  3. CLEXANE [Suspect]
     Indication: FRACTURED NECK OF FEMUR
     Dosage: 40 mg, QD
     Route: 058
     Dates: start: 20120930, end: 20121031
  4. CALCICHEW D3 [Concomitant]
     Dosage: 2 DF, QD
  5. FOLIC ACID [Concomitant]
     Dosage: 5 mg, QD
  6. LAXIDO [Concomitant]
     Dosage: unknown, PRN
  7. PARACETAMOL [Concomitant]
     Dosage: 1g, QID,

REACTIONS (2)
  - Haemoglobin decreased [Recovering/Resolving]
  - Rectal haemorrhage [Recovering/Resolving]
